FAERS Safety Report 9788852 (Version 1)
Quarter: 2013Q4

REPORT INFORMATION
  Report Type: Spontaneous
  Country: US (occurrence: US)
  Receive Date: 20131230
  Receipt Date: 20131230
  Transmission Date: 20140711
  Serious: Yes (Other)
  Sender: FDA-Public Use
  Company Number: US-GLAXOSMITHKLINE-A1054850A

PATIENT
  Sex: Female

DRUGS (5)
  1. LAMICTAL [Suspect]
     Indication: EPILEPSY
     Route: 065
  2. KEPPRA [Suspect]
     Indication: EPILEPSY
  3. CLONAZEPAM [Suspect]
     Indication: EPILEPSY
  4. ZONEGRAN [Suspect]
     Indication: EPILEPSY
  5. CLOBAZAM [Suspect]
     Indication: EPILEPSY

REACTIONS (3)
  - Convulsion [Not Recovered/Not Resolved]
  - Treatment failure [Not Recovered/Not Resolved]
  - Status epilepticus [Recovered/Resolved]
